FAERS Safety Report 9965495 (Version 1)
Quarter: 2014Q1

REPORT INFORMATION
  Report Type: Report from Study
  Country: US (occurrence: US)
  Receive Date: 20140305
  Receipt Date: 20140305
  Transmission Date: 20141002
  Serious: No
  Sender: FDA-Public Use
  Company Number: US-ABBVIE-13P-163-1125542-00

PATIENT
  Age: 40 Year
  Sex: Female

DRUGS (12)
  1. HUMIRA [Suspect]
     Indication: CROHN^S DISEASE
     Dosage: DAY 1
     Dates: start: 20130621, end: 20130621
  2. HUMIRA [Suspect]
     Dosage: DAY 15
  3. HUMIRA [Suspect]
     Dosage: DAY 29
  4. ENTOCORT [Concomitant]
     Indication: PRODUCT USED FOR UNKNOWN INDICATION
     Dosage: ONE TAB DAILY
  5. MULTIVITAMIN [Concomitant]
     Indication: PRODUCT USED FOR UNKNOWN INDICATION
     Dosage: DAILY
  6. FISH OIL [Concomitant]
     Indication: PRODUCT USED FOR UNKNOWN INDICATION
     Dosage: DAILY
  7. VITAMIN D [Concomitant]
     Indication: PRODUCT USED FOR UNKNOWN INDICATION
     Dosage: DAILY
  8. CINNAMON [Concomitant]
     Indication: PRODUCT USED FOR UNKNOWN INDICATION
     Dosage: DAILY
  9. GARLIC [Concomitant]
     Indication: PRODUCT USED FOR UNKNOWN INDICATION
     Dosage: DAILY
  10. CITALOPRAM [Concomitant]
     Indication: ANXIETY
     Dosage: DAILY
  11. PROBIOTIC [Concomitant]
     Indication: DYSBACTERIOSIS
     Dosage: DAILY
  12. HORMONES [Concomitant]
     Indication: MENOPAUSE
     Dosage: ESTROGEN, PROGESTERONE AND TESTOTERONE

REACTIONS (1)
  - Injection site bruising [Not Recovered/Not Resolved]
